FAERS Safety Report 9027318 (Version 1)
Quarter: 2013Q1

REPORT INFORMATION
  Report Type: Spontaneous
  Country: DK (occurrence: DE)
  Receive Date: 20130123
  Receipt Date: 20130123
  Transmission Date: 20140127
  Serious: Yes (Other)
  Sender: FDA-Public Use
  Company Number: DE-FRI-1000041935

PATIENT
  Age: 50 Year
  Sex: Male

DRUGS (2)
  1. ESCITALOPRAM [Suspect]
     Dosage: 20 MG
  2. NEUROLEPTICS [Concomitant]

REACTIONS (1)
  - Asthmatic crisis [Recovered/Resolved]
